FAERS Safety Report 5829721-0 (Version None)
Quarter: 2008Q3

REPORT INFORMATION
  Report Type: 
  Country: None (occurrence: None)
  Receive Date: 20080729
  Receipt Date: 20080721
  Transmission Date: 20090109
  Serious: Yes (Death)
  Sender: FDA-Public Use
  Company Number: 20085412

PATIENT
  Sex: Female

DRUGS (1)
  1. LIORESAL [Suspect]
     Indication: MUSCLE SPASTICITY
     Dosage: \MCG, DAILY, INTRATHECAL
     Route: 037

REACTIONS (1)
  - PHARMACEUTICAL PRODUCT COMPLAINT [None]
